FAERS Safety Report 20087326 (Version 1)
Quarter: 2021Q4

REPORT INFORMATION
  Report Type: Spontaneous
  Country: GB (occurrence: GB)
  Receive Date: 20211118
  Receipt Date: 20211118
  Transmission Date: 20220304
  Serious: Yes (Death, Hospitalization, Other)
  Sender: FDA-Public Use
  Company Number: GB-NOVARTISPH-NVSC2018GB018353

PATIENT
  Age: 72 Year
  Sex: Female
  Weight: 57.5 kg

DRUGS (12)
  1. DEXAMETHASONE [Suspect]
     Active Substance: DEXAMETHASONE
     Indication: Plasma cell myeloma
     Dosage: 20 MG (4 DOSAGE IN 28 DAYS)
     Route: 048
     Dates: start: 20170922, end: 20171111
  2. DEXAMETHASONE [Suspect]
     Active Substance: DEXAMETHASONE
     Indication: Plasma cell myeloma
     Dosage: 20 MG (4 DOSAGE IN 28 DAYS)
     Route: 048
     Dates: start: 20170922, end: 20171013
  3. POMALIDOMIDE [Suspect]
     Active Substance: POMALIDOMIDE
     Indication: Plasma cell myeloma
     Dosage: 4 MG (21 DOSAGE IN 28 DAYS)
     Route: 048
     Dates: start: 20170922, end: 20171109
  4. POMALIDOMIDE [Suspect]
     Active Substance: POMALIDOMIDE
     Dosage: 4 MG (21 DAY DOSAGE IN 28 DAYS)
     Route: 048
     Dates: start: 20180104, end: 20180124
  5. ACYCLOVIR [Concomitant]
     Active Substance: ACYCLOVIR
     Indication: Prophylaxis
     Dosage: 400 MG, QD
     Route: 048
     Dates: start: 20160229
  6. ACYCLOVIR [Concomitant]
     Active Substance: ACYCLOVIR
     Dosage: 200 MG, BID
     Route: 048
     Dates: start: 20160229
  7. CIPROFLOXACIN [Concomitant]
     Active Substance: CIPROFLOXACIN
     Indication: Infection
     Dosage: 1500 MG, QD
     Route: 048
     Dates: start: 20171108, end: 20171114
  8. CIPROFLOXACIN [Concomitant]
     Active Substance: CIPROFLOXACIN
     Dosage: 750 MG, BID
     Route: 048
     Dates: start: 20171108, end: 20171114
  9. FLUCONAZOLE [Concomitant]
     Active Substance: FLUCONAZOLE
     Indication: Oral candidiasis
     Dosage: 200 MG, QD
     Route: 048
     Dates: start: 20171106, end: 20171112
  10. CLOPIDOGREL [Concomitant]
     Active Substance: CLOPIDOGREL BISULFATE
     Indication: Thrombosis prophylaxis
     Dosage: 75 MG, QD
     Route: 048
     Dates: start: 201402
  11. TINZAPARIN [Concomitant]
     Active Substance: TINZAPARIN
     Indication: Thrombosis prophylaxis
     Dosage: 4500 IU, QD
     Route: 058
     Dates: start: 20160630
  12. APIXABAN [Concomitant]
     Active Substance: APIXABAN
     Indication: Thrombosis prophylaxis
     Dosage: 5 MG
     Route: 048
     Dates: start: 20171220

REACTIONS (8)
  - Febrile neutropenia [Recovered/Resolved]
  - Neutropenia [Recovered/Resolved]
  - Anaemia [Recovered/Resolved]
  - Nausea [Not Recovered/Not Resolved]
  - Dizziness [Not Recovered/Not Resolved]
  - Lymphopenia [Recovered/Resolved]
  - Leukopenia [Recovered/Resolved]
  - Fall [Not Recovered/Not Resolved]

NARRATIVE: CASE EVENT DATE: 20171012
